FAERS Safety Report 12701920 (Version 1)
Quarter: 2016Q3

REPORT INFORMATION
  Report Type: Spontaneous
  Country: US (occurrence: None)
  Receive Date: 20160830
  Receipt Date: 20160830
  Transmission Date: 20161109
  Serious: No
  Sender: FDA-Public Use
  Company Number: None

PATIENT
  Age: 63 Year
  Sex: Female

DRUGS (10)
  1. LEVEMIR [Concomitant]
     Active Substance: INSULIN DETEMIR
  2. CARVEDILOL. [Concomitant]
     Active Substance: CARVEDILOL
  3. NITROSTAT [Concomitant]
     Active Substance: NITROGLYCERIN
  4. HYDRALAZINE [Concomitant]
     Active Substance: HYDRALAZINE HYDROCHLORIDE
  5. ESBRIET [Suspect]
     Active Substance: PIRFENIDONE
     Indication: PULMONARY FIBROSIS
     Route: 048
     Dates: start: 20151208
  6. CRESTOR [Concomitant]
     Active Substance: ROSUVASTATIN CALCIUM
  7. FLOMAX [Concomitant]
     Active Substance: TAMSULOSIN HYDROCHLORIDE
  8. AMLODIPINE [Concomitant]
     Active Substance: AMLODIPINE BESYLATE
  9. HUMALOG [Concomitant]
     Active Substance: INSULIN LISPRO
  10. TORSEMID [Concomitant]
     Active Substance: TORSEMIDE

REACTIONS (3)
  - Epistaxis [None]
  - Hypoacusis [None]
  - Liver disorder [None]

NARRATIVE: CASE EVENT DATE: 201608
